FAERS Safety Report 6946921-7 (Version None)
Quarter: 2010Q3

REPORT INFORMATION
  Report Type: 
  Country: None (occurrence: None)
  Receive Date: 20100827
  Receipt Date: 20090817
  Transmission Date: 20110219
  Serious: No
  Sender: FDA-Public Use
  Company Number: US-ABBOTT-09P-163-0592764-00

PATIENT
  Sex: Male
  Weight: 79.45 kg

DRUGS (8)
  1. NIASPAN [Suspect]
     Indication: BLOOD CHOLESTEROL INCREASED
     Dates: start: 20040101
  2. ALTACE [Concomitant]
     Indication: CARDIAC DISORDER
  3. PLAVIX [Concomitant]
     Indication: CORONARY ARTERY BYPASS
  4. ASPIRIN [Concomitant]
     Indication: PRODUCT USED FOR UNKNOWN INDICATION
  5. ZOCOR [Concomitant]
     Indication: BLOOD CHOLESTEROL INCREASED
  6. TOPROL-XL [Concomitant]
     Indication: CARDIAC DISORDER
  7. ZETIA [Concomitant]
     Indication: BLOOD CHOLESTEROL INCREASED
  8. TRAVASTAN [Concomitant]
     Indication: INTRAOCULAR PRESSURE TEST ABNORMAL

REACTIONS (2)
  - GOUT [None]
  - PAIN [None]
